FAERS Safety Report 21593682 (Version 2)
Quarter: 2022Q4

REPORT INFORMATION
  Report Type: Spontaneous
  Country: US (occurrence: US)
  Receive Date: 20221115
  Receipt Date: 20221130
  Transmission Date: 20230113
  Serious: No
  Sender: FDA-Public Use
  Company Number: US-BRISTOL-MYERS SQUIBB COMPANY-2022-136492

PATIENT
  Age: 81 Year
  Sex: Male
  Weight: 79 kg

DRUGS (7)
  1. REVLIMID [Suspect]
     Active Substance: LENALIDOMIDE
     Indication: Plasma cell myeloma
     Dosage: DOSE : 25 MG;     FREQ : QD
     Route: 048
     Dates: start: 20221019, end: 202211
  2. REVLIMID [Suspect]
     Active Substance: LENALIDOMIDE
     Dosage: CYCLE 1 WAS ONLY 7 DAYS RESTARTED REVLIMID 3 STRENGTHS LOWER IN CYCLE 2 INSTEAD OF THE NEXT LOWER DO
     Route: 048
     Dates: start: 20221019, end: 202211
  3. REVLIMID [Suspect]
     Active Substance: LENALIDOMIDE
     Route: 065
  4. DEXAMETHASONE [Suspect]
     Active Substance: DEXAMETHASONE
     Indication: Product used for unknown indication
     Route: 048
  5. NINLARO [Suspect]
     Active Substance: IXAZOMIB CITRATE
     Indication: Product used for unknown indication
     Route: 065
  6. ASPIRIN [Concomitant]
     Active Substance: ASPIRIN
     Indication: Product used for unknown indication
     Route: 065
  7. ZOFRAN [Concomitant]
     Active Substance: ONDANSETRON HYDROCHLORIDE
     Indication: Product used for unknown indication
     Route: 065

REACTIONS (5)
  - Muscular weakness [Unknown]
  - Condition aggravated [Unknown]
  - Asthenia [Unknown]
  - Pain [Unknown]
  - Gait disturbance [Unknown]

NARRATIVE: CASE EVENT DATE: 20221101
